FAERS Safety Report 8561054 (Version 2)
Quarter: 2012Q4

REPORT INFORMATION
  Report Type: Report from Study
  Country: US (occurrence: US)
  Receive Date: 20120514
  Receipt Date: 20121031
  Transmission Date: 20130627
  Serious: Yes (Life-Threatening, Hospitalization)
  Sender: FDA-Public Use
  Company Number: US-GLAXOSMITHKLINE-R0022264A

PATIENT
  Age: 3 Year
  Sex: Male
  Weight: 15.45 kg

DRUGS (1)
  1. PLACEBO [Suspect]
     Indication: PROPHYLAXIS
     Route: 030
     Dates: start: 20110516, end: 20110516

REACTIONS (1)
  - Asthma [Recovered/Resolved]
